FAERS Safety Report 12539393 (Version 1)
Quarter: 2016Q3

REPORT INFORMATION
  Report Type: Spontaneous
  Country: GB (occurrence: GB)
  Receive Date: 20160708
  Receipt Date: 20160708
  Transmission Date: 20161109
  Serious: Yes (Other)
  Sender: FDA-Public Use
  Company Number: GB-ROCHE-1784855

PATIENT
  Age: 30 Year
  Sex: Female

DRUGS (7)
  1. FLUOROURACIL. [Concomitant]
     Active Substance: FLUOROURACIL
  2. CYCLOPHOSPHAMIDE. [Concomitant]
     Active Substance: CYCLOPHOSPHAMIDE
  3. TAMOXIFEN [Concomitant]
     Active Substance: TAMOXIFEN
  4. KADCYLA [Suspect]
     Active Substance: ADO-TRASTUZUMAB EMTANSINE
     Indication: PRODUCT USED FOR UNKNOWN INDICATION
     Route: 065
     Dates: start: 201407
  5. EPIRUBICIN [Concomitant]
     Active Substance: EPIRUBICIN
  6. DOCETAXEL. [Concomitant]
     Active Substance: DOCETAXEL
  7. HERCEPTIN [Suspect]
     Active Substance: TRASTUZUMAB
     Indication: PRODUCT USED FOR UNKNOWN INDICATION
     Route: 065
     Dates: end: 201312

REACTIONS (9)
  - Seizure [Unknown]
  - Metastases to central nervous system [Unknown]
  - Photopsia [Unknown]
  - Metastases to meninges [Unknown]
  - Metastasis [Unknown]
  - Lower respiratory tract infection [Unknown]
  - Cough [Unknown]
  - Dyspnoea [Unknown]
  - Metastases to lung [Unknown]
